FAERS Safety Report 16621623 (Version 1)
Quarter: 2019Q3

REPORT INFORMATION
  Report Type: Spontaneous
  Country: US (occurrence: US)
  Receive Date: 20190723
  Receipt Date: 20190723
  Transmission Date: 20191004
  Serious: Yes (Other)
  Sender: FDA-Public Use
  Company Number: US-OTSUKA-2018_031211

PATIENT
  Age: 46 Year
  Sex: Male
  Weight: 72.56 kg

DRUGS (1)
  1. REXULTI [Suspect]
     Active Substance: BREXPIPRAZOLE
     Indication: SCHIZOPHRENIA
     Dosage: 1.5 MG, QD (THREE 0.5MG TABLETS)
     Route: 048
     Dates: start: 20180705, end: 20180803

REACTIONS (7)
  - White blood cell count increased [Unknown]
  - Dystonia [Recovered/Resolved]
  - Neuroleptic malignant syndrome [Unknown]
  - Incorrect dose administered [Unknown]
  - Nausea [Recovered/Resolved]
  - Therapy cessation [Unknown]
  - Influenza like illness [Recovered/Resolved]

NARRATIVE: CASE EVENT DATE: 20180705
